FAERS Safety Report 9472737 (Version 1)
Quarter: 2013Q3

REPORT INFORMATION
  Report Type: Spontaneous
  Country: US (occurrence: US)
  Receive Date: 20130823
  Receipt Date: 20130823
  Transmission Date: 20140515
  Serious: No
  Sender: FDA-Public Use
  Company Number: US-009507513-1308USA009768

PATIENT
  Age: 57 Year
  Sex: Male

DRUGS (5)
  1. VICTRELIS [Suspect]
     Indication: HEPATITIS C
     Dosage: 800 MG, TID
     Route: 048
     Dates: start: 201305
  2. PEGASYS [Suspect]
     Dosage: UNKNOWN
  3. RIBASPHERE [Suspect]
     Dosage: UNKNOWN
  4. INCIVEK [Suspect]
     Dosage: UNKNOWN
  5. NORVASC [Concomitant]
     Dosage: UNKNOWN

REACTIONS (3)
  - Mood swings [Recovering/Resolving]
  - Irritability [Recovering/Resolving]
  - Dermatitis allergic [Unknown]
